FAERS Safety Report 18864492 (Version 1)
Quarter: 2021Q1

REPORT INFORMATION
  Report Type: Spontaneous
  Country: US (occurrence: US)
  Receive Date: 20210208
  Receipt Date: 20210208
  Transmission Date: 20210420
  Serious: Yes (Death)
  Sender: FDA-Public Use
  Company Number: None

PATIENT
  Age: 83 Year
  Sex: Male
  Weight: 106.9 kg

DRUGS (14)
  1. FUROSEMIDE 20 MG [Concomitant]
     Active Substance: FUROSEMIDE
  2. METOPROLOL 25 MG [Concomitant]
     Active Substance: METOPROLOL
  3. GABAPENTIN 100 MG [Concomitant]
     Active Substance: GABAPENTIN
  4. CHOLECALCIFEROL 2000 UNITS [Concomitant]
  5. ATORVASTATIN 80 MG [Concomitant]
     Active Substance: ATORVASTATIN
  6. APIXABAN 2.5 MG [Concomitant]
     Active Substance: APIXABAN
  7. LISINOPRIL 10 MG [Concomitant]
     Active Substance: LISINOPRIL
  8. INSULIN GLARGINE 60 UNITS [Concomitant]
  9. BAMLANIVIMAB. [Suspect]
     Active Substance: BAMLANIVIMAB
     Indication: COVID-19
     Dosage: ?          OTHER FREQUENCY:ONCE;?
     Route: 042
     Dates: start: 20210127, end: 20210127
  10. PANTOPRAZOLE 40 MG [Concomitant]
     Active Substance: PANTOPRAZOLE SODIUM
  11. CLOPIDOGREL [Concomitant]
     Active Substance: CLOPIDOGREL BISULFATE
  12. LIRAGLUTIDE 1.8 MG [Concomitant]
  13. ALLOPURINOL 200 MG [Concomitant]
     Active Substance: ALLOPURINOL
  14. HYDRALAZINE 100 MG [Concomitant]

REACTIONS (2)
  - Cardiac arrest [None]
  - Acute myocardial infarction [None]

NARRATIVE: CASE EVENT DATE: 20210127
